FAERS Safety Report 8488221-2 (Version None)
Quarter: 2012Q3

REPORT INFORMATION
  Report Type: 
  Country: None (occurrence: None)
  Receive Date: 20120705
  Receipt Date: 20120627
  Transmission Date: 20120928
  Serious: Yes (Hospitalization, Other)
  Sender: FDA-Public Use
  Company Number: US-ASTELLAS-2012US005006

PATIENT
  Sex: Female
  Weight: 40 kg

DRUGS (19)
  1. METOCLOPRAMIDE [Concomitant]
     Indication: APPETITE DISORDER
     Dosage: 10 MG, BEFORE MEALS AND AT BEDTIME
     Route: 048
  2. GEMFIBROZIL [Concomitant]
     Indication: DIABETES MELLITUS
     Dosage: 600 MG, BID
     Route: 048
  3. METOCLOPRAMIDE [Concomitant]
     Indication: NAUSEA
  4. ERLOTINIB HYDROCHLORIDE [Suspect]
     Indication: NON-SMALL CELL LUNG CANCER
     Dosage: 150 MG, UID/QD
     Route: 048
     Dates: start: 20120504, end: 20120625
  5. DASATINIB [Suspect]
     Indication: NON-SMALL CELL LUNG CANCER
     Dosage: 50 MG, UID/QD
     Route: 048
     Dates: start: 20120504, end: 20120625
  6. SENNA-MINT WAF [Concomitant]
     Indication: CONSTIPATION
     Dosage: 1-4 TABLETS, BID
     Route: 048
  7. ADVAIR DISKUS 100/50 [Concomitant]
     Indication: PRODUCT USED FOR UNKNOWN INDICATION
     Dosage: 1 PUFF, PRN
     Route: 055
  8. ALBUTEROL [Concomitant]
     Indication: PRODUCT USED FOR UNKNOWN INDICATION
     Dosage: 1 PUFF, PRN
     Route: 065
  9. HYDROCODONE BITARTRATE + ACETAMINOPHEN [Concomitant]
     Indication: PAIN
     Dosage: 10/325 MG, Q4H WHILE AWAKE
     Route: 048
  10. METFORMIN HCL [Concomitant]
     Indication: DIABETES MELLITUS
     Dosage: 1000 MG, BID
     Route: 048
  11. ZOFRAN ODT [Concomitant]
     Indication: VOMITING
  12. ATORVASTATIN [Concomitant]
     Indication: BLOOD CHOLESTEROL
     Dosage: 20 MG, UID/QD
     Route: 048
  13. BENZONATATE [Concomitant]
     Indication: COUGH
     Dosage: 100 MG, TID
     Route: 048
  14. LOSARTAN/HYDROCHLOORTHIAZIDE [Concomitant]
     Indication: BLOOD PRESSURE
     Dosage: 12.5/50 MG, UID/QD
     Route: 048
  15. LEVOTHYROXINE SODIUM [Concomitant]
     Indication: THYROID THERAPY
     Dosage: 125 UG, UID/QD
     Route: 048
  16. DASATINIB [Suspect]
     Dosage: 20 MG, UID/QD
     Route: 048
     Dates: start: 20120504, end: 20120625
  17. GABAPENTIN [Concomitant]
     Indication: PAIN
     Dosage: 300 MG, Q6 HOURS
     Route: 048
  18. ZOFRAN ODT [Concomitant]
     Indication: NAUSEA
     Dosage: 8 MG, QID PRN
     Route: 048
  19. XYLOXYLIN [Concomitant]
     Indication: OROPHARYNGEAL PAIN
     Dosage: 15 ML, BEFORE MEALS AND AT BEDTIME
     Route: 048

REACTIONS (9)
  - HYPOCALCAEMIA [None]
  - URINARY TRACT INFECTION [None]
  - DEHYDRATION [None]
  - DYSPNOEA [None]
  - HYPONATRAEMIA [None]
  - DIARRHOEA [None]
  - MENTAL STATUS CHANGES [None]
  - HYPERKALAEMIA [None]
  - RENAL FAILURE [None]
